FAERS Safety Report 5604061-3 (Version None)
Quarter: 2008Q1

REPORT INFORMATION
  Report Type: 
  Country: None (occurrence: None)
  Receive Date: 20080128
  Receipt Date: 20080118
  Transmission Date: 20080703
  Serious: Yes (Hospitalization, Other)
  Sender: FDA-Public Use
  Company Number: PHBS2007JP19438

PATIENT
  Age: 32 Year
  Sex: Female
  Weight: 44 kg

DRUGS (2)
  1. TEGRETOL [Suspect]
     Indication: EPILEPSY
     Dosage: 50 DF ONCE
     Route: 048
  2. ACETAZOLAMIDE [Suspect]
     Indication: INCORRECT DOSE ADMINISTERED
     Dosage: 10 DF ONCE
     Route: 048

REACTIONS (9)
  - ALTERED STATE OF CONSCIOUSNESS [None]
  - ANTICONVULSANT DRUG LEVEL INCREASED [None]
  - CONVULSION [None]
  - ELECTROENCEPHALOGRAM ABNORMAL [None]
  - ENDOTRACHEAL INTUBATION [None]
  - HAEMOGLOBIN DECREASED [None]
  - INTENTIONAL OVERDOSE [None]
  - MECHANICAL VENTILATION [None]
  - STATUS EPILEPTICUS [None]
